FAERS Safety Report 5816000-0 (Version None)
Quarter: 2008Q3

REPORT INFORMATION
  Report Type: 
  Country: None (occurrence: None)
  Receive Date: 20080721
  Receipt Date: 20080711
  Transmission Date: 20090109
  Serious: Yes (Other)
  Sender: FDA-Public Use
  Company Number: PHHY2008GB14290

PATIENT
  Sex: Male

DRUGS (2)
  1. CLOZARIL [Suspect]
     Dosage: 12.5 MG, UNK
     Route: 048
     Dates: start: 20080708
  2. CLOZARIL [Suspect]
     Dosage: 50 MG, ONCE/SINGLE
     Dates: start: 20080709

REACTIONS (3)
  - MEDICATION ERROR [None]
  - NEUTROPHIL COUNT ABNORMAL [None]
  - SEDATION [None]
